FAERS Safety Report 9362191 (Version 2)
Quarter: 2013Q3

REPORT INFORMATION
  Report Type: Spontaneous
  Country: US (occurrence: US)
  Receive Date: 20130622
  Receipt Date: 20130820
  Transmission Date: 20140515
  Serious: No
  Sender: FDA-Public Use
  Company Number: US-B.I. PHARMACEUTICALS,INC./RIDGEFIELD-2013-BI-17053BP

PATIENT
  Sex: Female

DRUGS (1)
  1. COMBIVENT [Suspect]
     Dosage: DAILY DOSE: 2 PUFFS 4 TIMES A DAY
     Route: 055

REACTIONS (3)
  - Prescribed overdose [Unknown]
  - Product quality issue [Unknown]
  - Product quality issue [Unknown]
